FAERS Safety Report 6682763-8 (Version None)
Quarter: 2010Q2

REPORT INFORMATION
  Report Type: 
  Country: None (occurrence: None)
  Receive Date: 20100415
  Receipt Date: 20100406
  Transmission Date: 20101027
  Serious: Yes (Death, Hospitalization)
  Sender: FDA-Public Use
  Company Number: CA-BAXTER-2010BH007179

PATIENT
  Age: 50 Year
  Sex: Female
  Weight: 58 kg

DRUGS (18)
  1. GAMMAGARD LIQUID [Suspect]
     Indication: NEUTROPENIA
     Route: 065
     Dates: start: 20100305, end: 20100305
  2. GAMMAGARD LIQUID [Suspect]
     Indication: SECONDARY IMMUNODEFICIENCY
     Route: 065
     Dates: start: 20100305, end: 20100305
  3. GAMMAGARD LIQUID [Suspect]
     Indication: ACUTE MYELOID LEUKAEMIA
     Route: 065
     Dates: start: 20100305, end: 20100305
  4. GAMMAGARD LIQUID [Suspect]
     Indication: REFRACTORINESS TO PLATELET TRANSFUSION
     Route: 065
     Dates: start: 20100305, end: 20100305
  5. GAMMAGARD LIQUID [Suspect]
     Route: 065
     Dates: start: 20100305, end: 20100305
  6. GAMMAGARD LIQUID [Suspect]
     Route: 065
     Dates: start: 20100305, end: 20100305
  7. GAMMAGARD LIQUID [Suspect]
     Route: 065
     Dates: start: 20100305, end: 20100305
  8. GAMMAGARD LIQUID [Suspect]
     Route: 065
     Dates: start: 20100305, end: 20100305
  9. VENTOLIN [Suspect]
     Indication: LARYNGOSPASM
     Route: 065
     Dates: start: 20100305, end: 20100305
  10. CHOLESTYRAMINE RESIN [Concomitant]
     Route: 048
     Dates: start: 20100305, end: 20100305
  11. PANTOPRAZOLE SODIUM [Concomitant]
     Route: 048
     Dates: start: 20100305, end: 20100305
  12. ALLOPURINOL [Concomitant]
     Route: 048
     Dates: start: 20100305, end: 20100305
  13. NYSTATIN [Concomitant]
     Route: 048
     Dates: start: 20100305, end: 20100305
  14. PLATELETS [Concomitant]
     Dates: start: 20100305, end: 20100305
  15. DIPHENHYDRAMINE HYDROCHLORIDE [Concomitant]
     Route: 042
     Dates: start: 20100305, end: 20100305
  16. TYLENOL-500 [Concomitant]
     Route: 048
     Dates: start: 20100305, end: 20100305
  17. CLONAZEPAM [Concomitant]
     Route: 048
     Dates: start: 20100305, end: 20100305
  18. SODIUM CHLORIDE [Concomitant]
     Dates: start: 20100305, end: 20100305

REACTIONS (10)
  - APHONIA [None]
  - CHILLS [None]
  - COUGH [None]
  - DEATH [None]
  - DYSPNOEA [None]
  - HYPOTENSION [None]
  - KLEBSIELLA INFECTION [None]
  - LARYNGOSPASM [None]
  - PYREXIA [None]
  - TACHYCARDIA [None]
